FAERS Safety Report 9789600 (Version 4)
Quarter: 2014Q1

REPORT INFORMATION
  Report Type: Spontaneous
  Country: RU (occurrence: RU)
  Receive Date: 20131231
  Receipt Date: 20140224
  Transmission Date: 20141002
  Serious: Yes (Other)
  Sender: FDA-Public Use
  Company Number: RU-BRISTOL-MYERS SQUIBB COMPANY-19942572

PATIENT
  Age: 59 Year
  Sex: Female
  Weight: 77 kg

DRUGS (5)
  1. ELIQUIS [Suspect]
     Indication: ARTERIOSCLEROSIS
     Dosage: ONGOING
     Route: 048
     Dates: start: 20131128
  2. ELIQUIS [Suspect]
     Indication: ATRIAL FIBRILLATION
     Dosage: ONGOING
     Route: 048
     Dates: start: 20131128
  3. SOTAHEXAL [Concomitant]
     Indication: ATRIAL FIBRILLATION
     Route: 048
     Dates: start: 201401
  4. DIGOXIN [Concomitant]
     Indication: ATRIAL FIBRILLATION
     Dosage: 1/2 TABLET
     Route: 048
  5. EUTIROX [Concomitant]
     Indication: HYPOTHYROIDISM

REACTIONS (4)
  - Gamma-glutamyltransferase increased [Recovering/Resolving]
  - Alanine aminotransferase increased [Recovered/Resolved]
  - Epistaxis [Recovered/Resolved]
  - Gingival bleeding [Recovered/Resolved]
